FAERS Safety Report 8620009-1 (Version None)
Quarter: 2012Q3

REPORT INFORMATION
  Report Type: 
  Country: None (occurrence: None)
  Receive Date: 20120824
  Receipt Date: 20120820
  Transmission Date: 20120928
  Serious: Yes (Other)
  Sender: FDA-Public Use
  Company Number: PHEH2012US016439

PATIENT
  Sex: Female

DRUGS (1)
  1. TOBI [Suspect]
     Indication: CYSTIC FIBROSIS
     Dosage: 5 ML, BID

REACTIONS (3)
  - CYSTIC FIBROSIS [None]
  - PSEUDOMONAS INFECTION [None]
  - CONDITION AGGRAVATED [None]
